FAERS Safety Report 5165715-9 (Version None)
Quarter: 2006Q4

REPORT INFORMATION
  Report Type: 
  Country: None (occurrence: None)
  Receive Date: 20061128
  Receipt Date: 20061110
  Transmission Date: 20070319
  Serious: No
  Sender: FDA-Public Use
  Company Number: 2006P1000399

PATIENT
  Age: 71 Year
  Sex: Male

DRUGS (6)
  1. NICARDIPINE HYDROCHLORIDE [Suspect]
     Indication: HYPERTENSION
     Dosage: 14.4 MCG, UNK; IV
     Route: 042
     Dates: start: 20060531, end: 20060621
  2. TEICOPLANIN (TEICOPLANIN) [Suspect]
     Indication: DRUG USE FOR UNKNOWN INDICATION
     Dosage: 400 MG; UNK
     Dates: start: 20060531, end: 20060621
  3. GLYCERYL TRINITRATE [Concomitant]
  4. PROPRANOLOL [Concomitant]
  5. CEFOPERAZONE SODIUM [Concomitant]
  6. CITICOLINE [Concomitant]

REACTIONS (4)
  - ERYTHEMA [None]
  - INDURATION [None]
  - PAIN IN EXTREMITY [None]
  - PHLEBITIS [None]
